FAERS Safety Report 6148719-9 (Version None)
Quarter: 2009Q2

REPORT INFORMATION
  Report Type: 
  Country: None (occurrence: None)
  Receive Date: 20090408
  Receipt Date: 20090331
  Transmission Date: 20091009
  Serious: Yes (Hospitalization)
  Sender: FDA-Public Use
  Company Number: GR-ABBOTT-09P-066-0502808-00

PATIENT
  Age: 69 Year
  Sex: Female
  Weight: 59 kg

DRUGS (6)
  1. HUMIRA [Suspect]
     Indication: RHEUMATOID ARTHRITIS
     Route: 058
     Dates: start: 20060517, end: 20081203
  2. SALOSPIR [Suspect]
     Indication: CORONARY ARTERY DISEASE
     Route: 048
     Dates: start: 20071201, end: 20090202
  3. LOPRESSOR [Concomitant]
     Indication: CORONARY ARTERY DISEASE
     Dosage: 1/2 TAB
     Route: 048
     Dates: start: 20071201
  4. CO-APROVEL [Concomitant]
     Indication: CORONARY ARTERY DISEASE
     Dosage: 1 TAB
     Route: 048
     Dates: start: 20081101
  5. CO-APROVEL [Concomitant]
     Indication: HYPERTENSION
  6. CALCIORAL [Concomitant]
     Indication: OSTEOPOROSIS
     Route: 048
     Dates: start: 20080901

REACTIONS (4)
  - ANAEMIA [None]
  - GASTROINTESTINAL HAEMORRHAGE [None]
  - HAEMATOCRIT DECREASED [None]
  - MELAENA [None]
